FAERS Safety Report 20200538 (Version 1)
Quarter: 2021Q4

REPORT INFORMATION
  Report Type: Spontaneous
  Country: US (occurrence: US)
  Receive Date: 20211217
  Receipt Date: 20211217
  Transmission Date: 20220303
  Serious: No
  Sender: FDA-Public Use
  Company Number: US-PERRIGO-21US000093

PATIENT
  Age: 60 Year
  Sex: Female
  Weight: 36.281 kg

DRUGS (4)
  1. BACITRACIN [Suspect]
     Active Substance: BACITRACIN
     Indication: Product used for unknown indication
     Dosage: SMALL AMOUNT, ONCE
     Route: 047
     Dates: start: 20210103, end: 20210103
  2. TAURINE [Concomitant]
     Active Substance: TAURINE
     Indication: Supplementation therapy
     Dosage: UNKNOWN, UNKNOWN
     Route: 065
  3. VITAMINS [Concomitant]
     Active Substance: VITAMINS
     Indication: Supplementation therapy
     Dosage: UNKNOWN, UNKNOWN
     Route: 065
  4. MAGNESIUM [Concomitant]
     Active Substance: MAGNESIUM
     Indication: Supplementation therapy
     Dosage: UNKNOWN, UNKNOWN
     Route: 065

REACTIONS (6)
  - Blepharospasm [Recovering/Resolving]
  - Corneal erosion [Not Recovered/Not Resolved]
  - Eye swelling [Not Recovered/Not Resolved]
  - Paraesthesia [Recovered/Resolved]
  - Dysgeusia [Recovered/Resolved]
  - Lip swelling [Not Recovered/Not Resolved]

NARRATIVE: CASE EVENT DATE: 20210103
